FAERS Safety Report 6442362-X (Version None)
Quarter: 2009Q4

REPORT INFORMATION
  Report Type: 
  Country: None (occurrence: None)
  Receive Date: 20091112
  Receipt Date: 20091027
  Transmission Date: 20100525
  Serious: Yes (Other)
  Sender: FDA-Public Use
  Company Number: 2009SP033193

PATIENT
  Sex: Male

DRUGS (4)
  1. PEG-INTRON [Suspect]
     Indication: HEPATITIS C
     Dates: start: 20030101
  2. PEG-INTRON [Suspect]
     Indication: HEPATITIS C
     Dates: start: 20090820
  3. RIBAVIRIN [Suspect]
     Indication: HEPATITIS C
     Dates: start: 20030101
  4. RIBAVIRIN [Suspect]
     Indication: HEPATITIS C
     Dates: start: 20090820

REACTIONS (2)
  - APPENDICITIS [None]
  - DISEASE RECURRENCE [None]
